FAERS Safety Report 8085479-9 (Version None)
Quarter: 2012Q1

REPORT INFORMATION
  Report Type: 
  Country: None (occurrence: None)
  Receive Date: 20120128
  Receipt Date: 20110411
  Transmission Date: 20120608
  Serious: No
  Sender: FDA-Public Use
  Company Number: US-ABBOTT-11P-163-0707733-00

PATIENT
  Sex: Male
  Weight: 74.91 kg

DRUGS (3)
  1. HUMIRA [Suspect]
     Indication: PSORIASIS
     Dates: start: 20100101
  2. NORCO [Concomitant]
     Indication: PAIN
  3. HUMIRA [Suspect]
     Indication: PSORIATIC ARTHROPATHY

REACTIONS (7)
  - FEELING HOT [None]
  - UPPER RESPIRATORY TRACT CONGESTION [None]
  - CARDIAC FLUTTER [None]
  - PAIN [None]
  - NASOPHARYNGITIS [None]
  - FEELING COLD [None]
  - OROPHARYNGEAL PAIN [None]
